FAERS Safety Report 12124714 (Version 1)
Quarter: 2016Q1

REPORT INFORMATION
  Report Type: Spontaneous
  Country: US (occurrence: US)
  Receive Date: 20160229
  Receipt Date: 20160229
  Transmission Date: 20160526
  Serious: No
  Sender: FDA-Public Use
  Company Number: US-TEVA-549864USA

PATIENT
  Sex: Female

DRUGS (1)
  1. NORTREL [Suspect]
     Active Substance: ETHINYL ESTRADIOL\NORETHINDRONE
     Indication: CONTRACEPTION
     Dates: start: 201403

REACTIONS (1)
  - Rash [Unknown]

NARRATIVE: CASE EVENT DATE: 201412
